FAERS Safety Report 25448292 (Version 3)
Quarter: 2025Q2

REPORT INFORMATION
  Report Type: Spontaneous
  Country: PL (occurrence: PL)
  Receive Date: 20250617
  Receipt Date: 20250627
  Transmission Date: 20250716
  Serious: Yes (Death, Hospitalization, Other)
  Sender: JOHNSON AND JOHNSON
  Company Number: PL-MYLANLABS-2022M1081874

PATIENT
  Age: 35 Year
  Sex: Male

DRUGS (4)
  1. DARUNAVIR [Suspect]
     Active Substance: DARUNAVIR
     Indication: HIV infection
  2. RITONAVIR [Suspect]
     Active Substance: RITONAVIR
     Indication: HIV infection
     Route: 065
  3. EMTRICITABINE [Suspect]
     Active Substance: EMTRICITABINE
     Indication: HIV infection
     Route: 065
  4. TENOFOVIR [Suspect]
     Active Substance: TENOFOVIR
     Indication: HIV infection
     Route: 065

REACTIONS (6)
  - Immune reconstitution inflammatory syndrome [Fatal]
  - Seizure [Unknown]
  - Cardiac arrest [Unknown]
  - Kaposi sarcoma inflammatory cytokine syndrome [Unknown]
  - Respiratory arrest [Unknown]
  - Nystagmus [Unknown]
